FAERS Safety Report 14729437 (Version 7)
Quarter: 2018Q4

REPORT INFORMATION
  Report Type: Report from Study
  Country: US (occurrence: US)
  Receive Date: 20180406
  Receipt Date: 20181119
  Transmission Date: 20190204
  Serious: Yes (Hospitalization, Other)
  Sender: FDA-Public Use
  Company Number: US-ACTELION-A-US2017-162445

PATIENT
  Age: 75 Year
  Sex: Female
  Weight: 62.13 kg

DRUGS (12)
  1. TOPROL XL [Concomitant]
     Active Substance: METOPROLOL SUCCINATE
     Dosage: UNK
     Dates: start: 20171227
  2. OPSUMIT [Suspect]
     Active Substance: MACITENTAN
     Indication: PULMONARY ARTERIAL HYPERTENSION
     Dosage: 10 MG, QD
     Route: 048
     Dates: start: 20170927, end: 20180328
  3. SILDENAFIL CITRATE. [Suspect]
     Active Substance: SILDENAFIL CITRATE
     Indication: PRODUCT USED FOR UNKNOWN INDICATION
     Dosage: UNK
     Route: 065
     Dates: start: 20171227
  4. AMARYL [Concomitant]
     Active Substance: GLIMEPIRIDE
     Dosage: UNK
     Dates: start: 20171227
  5. PHENERGAN [Concomitant]
     Active Substance: PROMETHAZINE HYDROCHLORIDE
  6. UPTRAVI [Suspect]
     Active Substance: SELEXIPAG
     Indication: PULMONARY ARTERIAL HYPERTENSION
     Dosage: 200 MCG, BID
     Route: 048
  7. ELIQUIS [Concomitant]
     Active Substance: APIXABAN
  8. ALDACTONE [Concomitant]
     Active Substance: SPIRONOLACTONE
     Dosage: UNK
     Dates: start: 20171227
  9. LASIX [Concomitant]
     Active Substance: FUROSEMIDE
     Dosage: UNK
     Dates: start: 20171227
  10. LEVOXYL [Concomitant]
     Active Substance: LEVOTHYROXINE SODIUM
     Dosage: UNK
     Dates: start: 20171227
  11. PROTONIX [Concomitant]
     Active Substance: PANTOPRAZOLE SODIUM
     Dosage: UNK
     Dates: start: 20171227
  12. CARTIA [Concomitant]
     Dosage: UNK
     Dates: start: 20171227

REACTIONS (38)
  - Epigastric discomfort [Recovered/Resolved]
  - Urinary incontinence [Unknown]
  - Hypotension [Unknown]
  - Hot flush [Unknown]
  - Abdominal distension [Recovered/Resolved]
  - Depression [Unknown]
  - Arterial disorder [Unknown]
  - Temperature intolerance [Unknown]
  - Influenza [Not Recovered/Not Resolved]
  - Feeling abnormal [Not Recovered/Not Resolved]
  - Pain [Recovered/Resolved]
  - Acute kidney injury [Unknown]
  - Hyperglycaemia [Unknown]
  - Fluid overload [Unknown]
  - Generalised oedema [Recovered/Resolved]
  - Oedema peripheral [Recovered/Resolved]
  - Gastrooesophageal reflux disease [Recovered/Resolved]
  - Chest discomfort [Recovered/Resolved]
  - Anaemia [Unknown]
  - Pulmonary hypertension [Unknown]
  - Anxiety [Unknown]
  - Back pain [Unknown]
  - Flushing [Unknown]
  - Gait inability [Unknown]
  - Pleural effusion [Unknown]
  - Fluid retention [Recovering/Resolving]
  - Fatigue [Unknown]
  - Asthenia [Unknown]
  - Peripheral swelling [Unknown]
  - Abdominal pain [Recovered/Resolved]
  - Dyspepsia [Recovered/Resolved]
  - Decreased appetite [Unknown]
  - Pain in extremity [Not Recovered/Not Resolved]
  - Therapeutic product ineffective [Unknown]
  - Pollakiuria [Unknown]
  - Cough [Not Recovered/Not Resolved]
  - Chills [Not Recovered/Not Resolved]
  - Disability [Recovered/Resolved]

NARRATIVE: CASE EVENT DATE: 20171026
